FAERS Safety Report 7489021-2 (Version None)
Quarter: 2011Q1

REPORT INFORMATION
  Report Type: 
  Country: None (occurrence: None)
  Receive Date: 20110316
  Receipt Date: 20100426
  Transmission Date: 20110831
  Serious: Yes (Hospitalization)
  Sender: FDA-Public Use
  Company Number: 2010MB000030

PATIENT
  Sex: Female

DRUGS (2)
  1. KEFLEX [Suspect]
     Indication: CELLULITIS
  2. PLAVIX [Suspect]
     Indication: CAROTID ARTERY STENOSIS
     Dosage: PO
     Route: 048

REACTIONS (1)
  - CLOSTRIDIUM COLITIS [None]
